FAERS Safety Report 7124830-0 (Version None)
Quarter: 2010Q4

REPORT INFORMATION
  Report Type: 
  Country: None (occurrence: None)
  Receive Date: 20101129
  Receipt Date: 20101117
  Transmission Date: 20110411
  Serious: Yes (Disabling)
  Sender: FDA-Public Use
  Company Number: GB-PFIZER INC-2010151160

PATIENT
  Age: 62 Year
  Sex: Male

DRUGS (5)
  1. AMIODARONE HCL [Suspect]
     Indication: ATRIAL FIBRILLATION
     Dosage: 200 MG, DAILY
     Route: 048
     Dates: start: 20090724
  2. FELODIPINE [Concomitant]
     Dosage: UNK
     Dates: start: 20030822
  3. BENDROFLUMETHIAZIDE [Concomitant]
     Dosage: UNK
     Dates: start: 20000328
  4. LISINOPRIL [Concomitant]
     Dosage: UNK
     Dates: start: 19990612
  5. WARFARIN [Concomitant]
     Dosage: UNK
     Dates: start: 20090903

REACTIONS (1)
  - ORCHITIS [None]
